FAERS Safety Report 10648868 (Version 1)
Quarter: 2014Q4

REPORT INFORMATION
  Report Type: Spontaneous
  Country: NO (occurrence: NO)
  Receive Date: 20141212
  Receipt Date: 20141212
  Transmission Date: 20150529
  Serious: Yes (Other)
  Sender: FDA-Public Use
  Company Number: NO-AMGEN-NORSP2014096583

PATIENT
  Age: 85 Year
  Sex: Female

DRUGS (10)
  1. CALCIGRAN FORTE [Concomitant]
     Dosage: 500 MG, QD
  2. VALIUM [Concomitant]
     Active Substance: DIAZEPAM
     Dosage: UNK UNK, AS NECESSARY
  3. NEURONTIN [Concomitant]
     Active Substance: GABAPENTIN
     Dosage: 300 MG, QD
  4. TRIOBE                             /01079901/ [Concomitant]
     Dosage: 1 DF, QD
  5. PROLIA [Suspect]
     Active Substance: DENOSUMAB
     Indication: OSTEOPOROSIS
     Dosage: UNK UNK, Q6MO
     Route: 065
     Dates: start: 201211
  6. NEXIUM [Concomitant]
     Active Substance: ESOMEPRAZOLE MAGNESIUM
     Dosage: 2 DF, QD
  7. OXYCONTIN [Concomitant]
     Active Substance: OXYCODONE HYDROCHLORIDE
     Dosage: 15 MG, QD
  8. PARACET                            /00020001/ [Concomitant]
     Active Substance: ACETAMINOPHEN
     Dosage: 1 G, QD
  9. XALATAN [Concomitant]
     Active Substance: LATANOPROST
     Dosage: 50 MUG, QD
  10. SAROTEX [Concomitant]
     Active Substance: AMITRIPTYLINE HYDROCHLORIDE
     Dosage: 10 MG, QD

REACTIONS (1)
  - Osteonecrosis of jaw [Not Recovered/Not Resolved]

NARRATIVE: CASE EVENT DATE: 201407
